FAERS Safety Report 6177139-6 (Version None)
Quarter: 2009Q2

REPORT INFORMATION
  Report Type: 
  Country: None (occurrence: None)
  Receive Date: 20090504
  Receipt Date: 20090417
  Transmission Date: 20091009
  Serious: Yes (Other)
  Sender: FDA-Public Use
  Company Number: US-PFIZER INC-2009202158

PATIENT
  Sex: Female
  Weight: 87.543 kg

DRUGS (8)
  1. CHANTIX [Suspect]
     Indication: SMOKING CESSATION THERAPY
     Dosage: 0.5 MG, 1X/DAY
     Route: 048
     Dates: start: 20090415
  2. DEPAKOTE [Concomitant]
     Dosage: UNKNOWN
  3. SEROQUEL [Concomitant]
     Dosage: UNKNOWN
  4. ATIVAN [Concomitant]
     Dosage: UNKNOWN
  5. RESTORIL [Concomitant]
     Dosage: UNKNOWN
  6. CELEBREX [Concomitant]
     Dosage: UNKNOWN
  7. NEXIUM [Concomitant]
     Indication: ULCER
     Dosage: UNKNOWN
  8. SYNTHROID [Concomitant]
     Dosage: UNKNOWN

REACTIONS (1)
  - MANIA [None]
